FAERS Safety Report 7225856-9 (Version None)
Quarter: 2011Q1

REPORT INFORMATION
  Report Type: 
  Country: None (occurrence: None)
  Receive Date: 20110107
  Receipt Date: 20110107
  Transmission Date: 20110831
  Serious: No
  Sender: FDA-Public Use
  Company Number: None

PATIENT
  Sex: Female
  Weight: 70.2 kg

DRUGS (1)
  1. GENERIC CLONIDINE PATCH .3/24 HOUR [Suspect]
     Dosage: SEVERAL MONTHS
     Dates: start: 20090101

REACTIONS (6)
  - RASH [None]
  - FALL [None]
  - PRODUCT ADHESION ISSUE [None]
  - PRODUCT QUALITY ISSUE [None]
  - PRODUCT FORMULATION ISSUE [None]
  - NO THERAPEUTIC RESPONSE [None]
